FAERS Safety Report 25331236 (Version 1)
Quarter: 2025Q2

REPORT INFORMATION
  Report Type: Spontaneous
  Country: US (occurrence: US)
  Receive Date: 20250519
  Receipt Date: 20250519
  Transmission Date: 20250716
  Serious: No
  Sender: VERTEX
  Company Number: US-VERTEX PHARMACEUTICALS-2025-007582

PATIENT
  Age: 52 Year
  Sex: Male

DRUGS (2)
  1. SUZETRIGINE [Suspect]
     Active Substance: SUZETRIGINE
     Indication: Pain
     Dosage: 100 MG, SINGLE
     Route: 048
  2. SUZETRIGINE [Suspect]
     Active Substance: SUZETRIGINE
     Indication: Radiculopathy

REACTIONS (1)
  - Depression [Recovered/Resolved]
